FAERS Safety Report 16137104 (Version 8)
Quarter: 2021Q4

REPORT INFORMATION
  Report Type: Report from Study
  Country: KR (occurrence: KR)
  Receive Date: 20190329
  Receipt Date: 20211113
  Transmission Date: 20220303
  Serious: Yes (Hospitalization, Other)
  Sender: FDA-Public Use
  Company Number: KR-ABBVIE-19K-090-2722449-00

PATIENT
  Age: 75 Year
  Sex: Male

DRUGS (6)
  1. GLECAPREVIR\PIBRENTASVIR [Suspect]
     Active Substance: GLECAPREVIR\PIBRENTASVIR
     Indication: Chronic hepatitis C
     Route: 048
     Dates: start: 20181217, end: 20181224
  2. VIEKIRA PAK [Suspect]
     Active Substance: DASABUVIR\OMBITASVIR\PARITAPREVIR\RITONAVIR
     Indication: Chronic hepatitis C
     Route: 048
     Dates: start: 20180115, end: 20180126
  3. BARNIDIPINE [Concomitant]
     Active Substance: BARNIDIPINE
     Indication: Hypertension
     Route: 048
     Dates: start: 20181217
  4. ASPIRIN [Concomitant]
     Active Substance: ASPIRIN
     Indication: Thrombophlebitis
     Route: 048
     Dates: start: 20150911
  5. CILOSTAN CR [Concomitant]
     Indication: Thrombophlebitis
     Route: 048
     Dates: start: 20160912
  6. REBAMIPIDE [Concomitant]
     Active Substance: REBAMIPIDE
     Indication: Antacid therapy
     Route: 048
     Dates: start: 20150911

REACTIONS (1)
  - Rhabdomyolysis [Recovered/Resolved]

NARRATIVE: CASE EVENT DATE: 20181220
